FAERS Safety Report 20996835 (Version 3)
Quarter: 2022Q4

REPORT INFORMATION
  Report Type: Report from Study
  Country: US (occurrence: US)
  Receive Date: 20220623
  Receipt Date: 20221111
  Transmission Date: 20230113
  Serious: Yes (Other)
  Sender: FDA-Public Use
  Company Number: US-BRISTOL-MYERS SQUIBB COMPANY-2022-056064

PATIENT
  Age: 75 Year
  Sex: Male
  Weight: 76.20 kg

DRUGS (1)
  1. REVLIMID [Suspect]
     Active Substance: LENALIDOMIDE
     Indication: Plasma cell myeloma
     Dosage: FREQUENCY: DAILY?EXP-30-SEP-2024?BATCH NUMBER (A3729B) AND EXPIRY DATE (31-AUG-2024)
     Route: 048
     Dates: start: 20160114

REACTIONS (3)
  - Memory impairment [Unknown]
  - Ankle fracture [Unknown]
  - Abdominal discomfort [Recovered/Resolved]

NARRATIVE: CASE EVENT DATE: 20220910
